FAERS Safety Report 8844482 (Version 2)
Quarter: 2012Q4

REPORT INFORMATION
  Report Type: 
  Country: US (occurrence: US)
  Receive Date: 20121017
  Receipt Date: 20121121
  Transmission Date: 20130627
  Serious: Yes (Death, Hospitalization, Other)
  Sender: FDA-Public Use
  Company Number: US-NOVOPROD-361806

PATIENT
  Sex: Female

DRUGS (2)
  1. NOVOSEVEN RT [Suspect]
     Indication: ACQUIRED HAEMOPHILIA
     Route: 042
  2. RITUXAN [Suspect]
     Indication: PRODUCT USED FOR UNKNOWN INDICATION
     Dosage: 1 dose

REACTIONS (3)
  - Multi-organ failure [Fatal]
  - Sepsis [Fatal]
  - Drug ineffective [Unknown]
